FAERS Safety Report 10251831 (Version 2)
Quarter: 2014Q2

REPORT INFORMATION
  Report Type: Spontaneous
  Country: BR (occurrence: BR)
  Receive Date: 20140623
  Receipt Date: 20140623
  Transmission Date: 20141212
  Serious: Yes (Hospitalization, Other)
  Sender: FDA-Public Use
  Company Number: BR-ROCHE-509755

PATIENT
  Age: 69 Year
  Sex: Female
  Weight: 67 kg

DRUGS (1)
  1. HERCEPTIN [Suspect]
     Indication: BREAST CANCER
     Dosage: THERAPY REPORTED AS FIVE INFUSIONS. FORM STRENGTH=21 MG/ML
     Route: 042
     Dates: start: 200705, end: 20070719

REACTIONS (17)
  - Cardiopulmonary failure [Recovered/Resolved]
  - Hepatomegaly [Recovered/Resolved]
  - Cardiac failure [Unknown]
  - Anaemia [Recovering/Resolving]
  - Tremor [Not Recovered/Not Resolved]
  - Bone pain [Recovering/Resolving]
  - Myalgia [Unknown]
  - Diarrhoea [Unknown]
  - Dizziness [Recovered/Resolved]
  - Feeling of body temperature change [Not Recovered/Not Resolved]
  - Abdominal pain [Unknown]
  - Fatigue [Unknown]
  - Headache [Unknown]
  - Nausea [Unknown]
  - Arthralgia [Not Recovered/Not Resolved]
  - Feeling hot [Unknown]
  - Bradycardia [Not Recovered/Not Resolved]
